FAERS Safety Report 10386714 (Version 5)
Quarter: 2014Q4

REPORT INFORMATION
  Report Type: Report from Study
  Country: ES (occurrence: ES)
  Receive Date: 20140815
  Receipt Date: 20141001
  Transmission Date: 20150528
  Serious: Yes (Hospitalization)
  Sender: FDA-Public Use
  Company Number: ES-JNJFOC-20140805851

PATIENT
  Age: 72 Year
  Sex: Female
  Weight: 56 kg

DRUGS (14)
  1. MOFETIL MYCOPHENOLATE [Concomitant]
     Indication: LIVER TRANSPLANT
     Route: 048
     Dates: start: 2007
  2. FUROSEMIDE. [Concomitant]
     Active Substance: FUROSEMIDE
     Indication: ASCITES
     Route: 048
     Dates: start: 201402
  3. DACLATASVIR [Suspect]
     Active Substance: DACLATASVIR
     Indication: HEPATITIS C
     Route: 048
     Dates: start: 20140519, end: 20140814
  4. CYCLOSPORIN A [Suspect]
     Active Substance: CYCLOSPORINE
     Indication: LIVER TRANSPLANT
     Route: 048
     Dates: start: 2004
  5. LACTITOL [Concomitant]
     Active Substance: LACTITOL
     Indication: ENCEPHALOPATHY
     Route: 048
     Dates: start: 2013
  6. SPIRONOLACTONE. [Concomitant]
     Active Substance: SPIRONOLACTONE
     Indication: ASCITES
     Dosage: 100
     Route: 048
     Dates: start: 201402
  7. AMLODIPINE [Concomitant]
     Active Substance: AMLODIPINE BESYLATE
     Indication: HYPERTENSION
     Route: 048
     Dates: start: 2007
  8. CYCLOSPORIN A [Suspect]
     Active Substance: CYCLOSPORINE
     Indication: LIVER TRANSPLANT
     Dosage: 25 MG ONCE EVERY OTHER DAY AND 25 MG TWICE DAILY ON THE ALTERNATE DAY (EVERY OTHER DAY)
     Route: 048
     Dates: start: 2014, end: 20140814
  9. SIMEPREVIR [Suspect]
     Active Substance: SIMEPREVIR
     Indication: HEPATITIS C
     Route: 048
     Dates: start: 20140804, end: 20140814
  10. RIFAXIMIN [Concomitant]
     Active Substance: RIFAXIMIN
     Indication: ENCEPHALOPATHY
     Route: 048
     Dates: start: 201402
  11. ALLOPURINOL. [Concomitant]
     Active Substance: ALLOPURINOL
     Indication: BLOOD URIC ACID INCREASED
     Dosage: 300
     Route: 048
     Dates: start: 2013
  12. SIMEPREVIR [Suspect]
     Active Substance: SIMEPREVIR
     Indication: HEPATITIS C
     Route: 048
     Dates: start: 20140519, end: 20140730
  13. ENALAPRIL [Concomitant]
     Active Substance: ENALAPRIL
     Route: 048
  14. INSULIN [Concomitant]
     Active Substance: INSULIN NOS
     Indication: DIABETES MELLITUS
     Dosage: 18-0-16
     Route: 058

REACTIONS (9)
  - Nausea [Recovered/Resolved]
  - Oedema peripheral [Unknown]
  - Polyuria [Unknown]
  - Anaemia [Unknown]
  - Cardiac failure acute [Unknown]
  - Hepatic encephalopathy [Recovered/Resolved]
  - Constipation [Unknown]
  - Asthenia [Recovered/Resolved]
  - Vomiting [Recovered/Resolved]

NARRATIVE: CASE EVENT DATE: 20140728
